FAERS Safety Report 8872105 (Version 1)
Quarter: 2012Q4

REPORT INFORMATION
  Report Type: Spontaneous
  Country: US (occurrence: None)
  Receive Date: 20121026
  Receipt Date: 20121026
  Transmission Date: 20130627
  Serious: No
  Sender: FDA-Public Use
  Company Number: None

PATIENT
  Age: 63 Year
  Sex: Male
  Weight: 159.1 kg

DRUGS (1)
  1. LOVASTATIN [Suspect]
     Dosage: 40 MG EVERY DAY PO
     Route: 048
     Dates: start: 20120807, end: 20121017

REACTIONS (3)
  - Myalgia [None]
  - Blood creatine phosphokinase increased [None]
  - Tendon rupture [None]
